FAERS Safety Report 20088679 (Version 1)
Quarter: 2021Q4

REPORT INFORMATION
  Report Type: Spontaneous
  Country: US (occurrence: US)
  Receive Date: 20211119
  Receipt Date: 20211119
  Transmission Date: 20220303
  Serious: Yes (Death, Hospitalization, Other)
  Sender: FDA-Public Use
  Company Number: US-AMGEN-USASP2021176678

PATIENT

DRUGS (3)
  1. DARBEPOETIN ALFA [Suspect]
     Active Substance: DARBEPOETIN ALFA
     Indication: Nephrogenic anaemia
     Dosage: UNK
     Route: 058
  2. IRON [Concomitant]
     Active Substance: IRON
     Dosage: UNK
     Route: 048
  3. IRON [Concomitant]
     Active Substance: IRON
     Dosage: UNK
     Route: 042

REACTIONS (51)
  - Death [Fatal]
  - Neoplasm malignant [Fatal]
  - Cardiac failure [Fatal]
  - Myocardial infarction [Fatal]
  - Cerebrovascular accident [Fatal]
  - Pulmonary embolism [Fatal]
  - Vascular access site thrombosis [Fatal]
  - Atrial fibrillation [Unknown]
  - Anaemia [Unknown]
  - Acute kidney injury [Unknown]
  - COVID-19 [Unknown]
  - Azotaemia [Unknown]
  - End stage renal disease [Unknown]
  - Cardiomyopathy [Unknown]
  - Pulmonary arterial hypertension [Unknown]
  - Erosive oesophagitis [Unknown]
  - Gastritis erosive [Unknown]
  - Retinopathy proliferative [Unknown]
  - Macular oedema [Unknown]
  - Choroidal neovascularisation [Unknown]
  - Rheumatoid arthritis [Unknown]
  - Hyperkalaemia [Unknown]
  - Neoplasm recurrence [Unknown]
  - Cardiac valve disease [Unknown]
  - Neoplasm progression [Unknown]
  - Acute myocardial infarction [Unknown]
  - Urinary tract infection [Unknown]
  - Hypervolaemia [Unknown]
  - Angina pectoris [Unknown]
  - Chronic kidney disease [Unknown]
  - Transient ischaemic attack [Unknown]
  - Cardiac arrest [Unknown]
  - Pneumonia [Unknown]
  - Cardiac failure congestive [Unknown]
  - Sepsis [Unknown]
  - Thrombosis [Unknown]
  - Ischaemia [Unknown]
  - Deep vein thrombosis [Unknown]
  - Coronary artery disease [Unknown]
  - Upper respiratory tract infection [Unknown]
  - Arthralgia [Unknown]
  - Constipation [Unknown]
  - Diarrhoea [Unknown]
  - Nausea [Unknown]
  - Nasopharyngitis [Unknown]
  - Oedema peripheral [Unknown]
  - Hypotension [Unknown]
  - Headache [Unknown]
  - Fall [Unknown]
  - Back pain [Unknown]
  - Hypertension [Unknown]
